FAERS Safety Report 5132885-8 (Version None)
Quarter: 2006Q4

REPORT INFORMATION
  Report Type: 
  Country: None (occurrence: None)
  Receive Date: 20061019
  Receipt Date: 20061019
  Transmission Date: 20070319
  Serious: Yes (Other)
  Sender: FDA-Public Use
  Company Number: None

PATIENT
  Age: 46 Year
  Sex: Female
  Weight: 118 kg

DRUGS (1)
  1. BACTRIM [Suspect]
     Indication: PERITONITIS
     Dosage: 5 MG/KG Q AM IV
     Route: 042
     Dates: start: 20060906, end: 20060915

REACTIONS (1)
  - HYPERKALAEMIA [None]
